FAERS Safety Report 9307659 (Version 2)
Quarter: 2013Q2

REPORT INFORMATION
  Report Type: Spontaneous
  Country: US (occurrence: US)
  Receive Date: 20130524
  Receipt Date: 20130620
  Transmission Date: 20140414
  Serious: No
  Sender: FDA-Public Use
  Company Number: US-PFIZER INC-2013154474

PATIENT
  Age: 64 Year
  Sex: Female

DRUGS (1)
  1. TOLTERODINE TARTRATE [Suspect]
     Dosage: UNK

REACTIONS (7)
  - Medication residue present [Unknown]
  - Bladder dysfunction [Unknown]
  - Painful defaecation [Unknown]
  - Discomfort [Unknown]
  - Constipation [Unknown]
  - Haemorrhoids [Unknown]
  - Pain [Unknown]
